FAERS Safety Report 4654906-9 (Version None)
Quarter: 2005Q2

REPORT INFORMATION
  Report Type: 
  Country: None (occurrence: None)
  Receive Date: 20050506
  Receipt Date: 20040407
  Transmission Date: 20051028
  Serious: No
  Sender: FDA-Public Use
  Company Number: US-GLAXOSMITHKLINE-A0506472A

PATIENT
  Sex: Female

DRUGS (1)
  1. AMOXIL [Suspect]
     Indication: LYME DISEASE
     Dosage: 1G TWICE PER DAY
     Route: 048

REACTIONS (1)
  - SUNBURN [None]
